FAERS Safety Report 8743956 (Version 2)
Quarter: 2012Q4

REPORT INFORMATION
  Report Type: 
  Country: JP (occurrence: JP)
  Receive Date: 20120824
  Receipt Date: 20120904
  Transmission Date: 20130627
  Serious: No
  Sender: FDA-Public Use
  Company Number: JP-PFIZER INC-2012204954

PATIENT
  Age: 4 Year
  Sex: Male

DRUGS (1)
  1. LYRICA [Suspect]
     Indication: INTERVERTEBRAL DISC PROTRUSION
     Dosage: 450 mg (6 capsules of 75 mg) daily
     Route: 048
     Dates: start: 201207

REACTIONS (1)
  - Dizziness [Unknown]
